FAERS Safety Report 5991733-4 (Version None)
Quarter: 2008Q4

REPORT INFORMATION
  Report Type: 
  Country: None (occurrence: None)
  Receive Date: 20081202
  Receipt Date: 20071130
  Transmission Date: 20090506
  Serious: Yes (Other)
  Sender: FDA-Public Use
  Company Number: WAES 0605USA00564

PATIENT
  Age: 70 Year
  Sex: Female

DRUGS (3)
  1. FOSAMAX [Suspect]
     Indication: OSTEOPOROSIS
     Dosage: 10 MG/DAILY/PO
     Route: 048
     Dates: start: 20001206, end: 20010722
  2. FOSAMAX [Suspect]
     Indication: OSTEOPOROSIS
     Dosage: 70 MG/WKY/PO
     Route: 048
     Dates: start: 20010723, end: 20060411
  3. CALCIUM (UNSPECIFIED) [Concomitant]

REACTIONS (20)
  - ACUTE SINUSITIS [None]
  - ECCHYMOSIS [None]
  - EXOSTOSIS [None]
  - FALL [None]
  - GASTROOESOPHAGEAL REFLUX DISEASE [None]
  - HEADACHE [None]
  - HYPOTENSION [None]
  - LARYNGITIS [None]
  - MUSCULOSKELETAL CHEST PAIN [None]
  - NORMAL TENSION GLAUCOMA [None]
  - ORAL INFECTION [None]
  - ORAL TORUS [None]
  - OSTEONECROSIS [None]
  - OSTEOSCLEROSIS [None]
  - PELVIC FLOOR MUSCLE WEAKNESS [None]
  - SCIATICA [None]
  - TACHYCARDIA [None]
  - URINARY TRACT INFECTION [None]
  - URTICARIA [None]
  - VOCAL CORD CYST [None]
